FAERS Safety Report 21010671 (Version 1)
Quarter: 2022Q2

REPORT INFORMATION
  Report Type: Spontaneous
  Country: US (occurrence: None)
  Receive Date: 20220624
  Receipt Date: 20220624
  Transmission Date: 20220721
  Serious: No
  Sender: FDA-Public Use
  Company Number: None

PATIENT
  Age: 55 Year
  Sex: Female
  Weight: 74.39 kg

DRUGS (8)
  1. KISQALI [Suspect]
     Active Substance: RIBOCICLIB
     Indication: Breast cancer female
     Dosage: OTHER FREQUENCY : 21D ON 7DOF;?
     Route: 048
     Dates: start: 202110
  2. EFFEXOR [Concomitant]
  3. LETROZOLE [Concomitant]
  4. MELOXICAM [Concomitant]
  5. VITAMIN B12 [Concomitant]
  6. VITAMIN C [Concomitant]
  7. VITAMIN D3 [Concomitant]
  8. ZINC [Concomitant]

REACTIONS (1)
  - Disease progression [None]
